FAERS Safety Report 22361534 (Version 1)
Quarter: 2023Q2

REPORT INFORMATION
  Report Type: Spontaneous
  Country: US (occurrence: US)
  Receive Date: 20230524
  Receipt Date: 20230524
  Transmission Date: 20230722
  Serious: No
  Sender: FDA-Public Use
  Company Number: US-BAYER-2023A070311

PATIENT
  Age: 4 Decade
  Sex: Female

DRUGS (1)
  1. MIRALAX [Suspect]
     Active Substance: POLYETHYLENE GLYCOL 3350
     Dosage: 1 DOSE TO 8OZ WATER
     Route: 048
     Dates: start: 202303, end: 20230516

REACTIONS (2)
  - Dyspepsia [Recovering/Resolving]
  - Oesophageal pain [Recovering/Resolving]

NARRATIVE: CASE EVENT DATE: 20230301
